FAERS Safety Report 25340988 (Version 2)
Quarter: 2025Q2

REPORT INFORMATION
  Report Type: Spontaneous
  Country: US (occurrence: US)
  Receive Date: 20250521
  Receipt Date: 20250610
  Transmission Date: 20250717
  Serious: Yes (Hospitalization, Other)
  Sender: RECKITT BENCKISER
  Company Number: US-MLMSERVICE-20250512-PI495790-00118-2

PATIENT
  Age: 13 Year
  Sex: Male
  Weight: 50 kg

DRUGS (1)
  1. DEXTROMETHORPHAN [Suspect]
     Active Substance: DEXTROMETHORPHAN
     Indication: Respiratory symptom
     Route: 065

REACTIONS (2)
  - Anaphylactic reaction [Recovered/Resolved]
  - Cardiac dysfunction [Recovered/Resolved]
